FAERS Safety Report 25190421 (Version 2)
Quarter: 2025Q2

REPORT INFORMATION
  Report Type: Spontaneous
  Country: RU (occurrence: RU)
  Receive Date: 20250411
  Receipt Date: 20250517
  Transmission Date: 20250716
  Serious: Yes (Other)
  Sender: MERCK SHARP & DOHME LLC
  Company Number: RU-009507513-2271216

PATIENT
  Age: 43 Year
  Sex: Female

DRUGS (1)
  1. PEMBROLIZUMAB [Suspect]
     Active Substance: PEMBROLIZUMAB
     Indication: Breast cancer

REACTIONS (3)
  - Neutropenia [Unknown]
  - Asthenia [Unknown]
  - Anaemia [Unknown]
